FAERS Safety Report 4815672-7 (Version None)
Quarter: 2005Q4

REPORT INFORMATION
  Report Type: 
  Country: None (occurrence: None)
  Receive Date: 20051031
  Receipt Date: 20040804
  Transmission Date: 20060501
  Serious: Yes (Hospitalization)
  Sender: FDA-Public Use
  Company Number: US-ROCHE-376856

PATIENT
  Age: 29 Year
  Sex: Male
  Weight: 79.4 kg

DRUGS (8)
  1. ACCUTANE [Suspect]
     Indication: ACNE
     Route: 048
     Dates: start: 19930815, end: 19931115
  2. PREDNISOLONE [Concomitant]
  3. ASACOL [Concomitant]
  4. ACCOLATE [Concomitant]
     Indication: ASTHMA
  5. UNKNOWN [Concomitant]
     Indication: BLOOD PRESSURE INCREASED
  6. IMURAN [Concomitant]
  7. ROWASA [Concomitant]
  8. ZANTAC [Concomitant]

REACTIONS (8)
  - BLOOD IRON DECREASED [None]
  - CHOLECYSTITIS [None]
  - CHOLELITHIASIS [None]
  - COLITIS ULCERATIVE [None]
  - GASTROINTESTINAL DISORDER [None]
  - HAEMATOCHEZIA [None]
  - LYMPHADENOPATHY [None]
  - NAUSEA [None]
